FAERS Safety Report 6010196-6 (Version None)
Quarter: 2008Q4

REPORT INFORMATION
  Report Type: 
  Country: None (occurrence: None)
  Receive Date: 20081218
  Receipt Date: 20080627
  Transmission Date: 20090506
  Serious: No
  Sender: FDA-Public Use
  Company Number: A0668366A

PATIENT
  Age: 75 Year
  Sex: Female

DRUGS (1)
  1. FLONASE [Suspect]
     Indication: DRUG USE FOR UNKNOWN INDICATION
     Route: 045

REACTIONS (2)
  - CANDIDIASIS [None]
  - OROPHARYNGITIS FUNGAL [None]
